FAERS Safety Report 7842985-7 (Version None)
Quarter: 2011Q4

REPORT INFORMATION
  Report Type: 
  Country: None (occurrence: None)
  Receive Date: 20111025
  Receipt Date: 20111013
  Transmission Date: 20120403
  Serious: Yes (Other)
  Sender: FDA-Public Use
  Company Number: CA-ELI_LILLY_AND_COMPANY-CA201110003066

PATIENT

DRUGS (3)
  1. ZYPREXA [Suspect]
     Dosage: 5 MG, EACH EVENING
  2. ZYPREXA [Suspect]
     Dosage: 10 MG, EACH EVENING
  3. ZYPREXA ZYDIS [Suspect]
     Dosage: 5 MG, QD

REACTIONS (4)
  - RENAL FAILURE [None]
  - RENAL DISORDER [None]
  - DIABETES MELLITUS [None]
  - OBSTRUCTION [None]
